FAERS Safety Report 5310174-6 (Version None)
Quarter: 2007Q2

REPORT INFORMATION
  Report Type: 
  Country: None (occurrence: None)
  Receive Date: 20070427
  Receipt Date: 20070416
  Transmission Date: 20071010
  Serious: Yes (Hospitalization)
  Sender: FDA-Public Use
  Company Number: FR-JNJFOC-20061004003

PATIENT
  Age: 71 Year
  Sex: Male

DRUGS (9)
  1. ACETAMINOPHEN AND TRAMADOL HCL [Suspect]
     Route: 048
  2. ACETAMINOPHEN AND TRAMADOL HCL [Suspect]
     Indication: RIB FRACTURE
     Route: 048
  3. PROPOFOL [Suspect]
     Indication: RIB FRACTURE
     Route: 048
  4. ALLOPURINOL [Suspect]
     Indication: ARTHROPATHY
     Route: 048
  5. ZANIDIP [Concomitant]
     Indication: ESSENTIAL HYPERTENSION
     Route: 048
  6. ACTONEL [Concomitant]
     Route: 048
  7. LAMALINE [Concomitant]
     Route: 048
  8. DI-ANTALVIC [Concomitant]
     Route: 048
  9. DURAGESIC-100 [Concomitant]
     Route: 062

REACTIONS (4)
  - AGRANULOCYTOSIS [None]
  - LEUKOPENIA [None]
  - THROMBOCYTOPENIA [None]
  - TRANSAMINASES INCREASED [None]
